APPROVED DRUG PRODUCT: HEPARIN SODIUM
Active Ingredient: HEPARIN SODIUM
Strength: 10,000 UNITS/ML
Dosage Form/Route: INJECTABLE;INJECTION
Application: A040095 | Product #001
Applicant: HOSPIRA INC
Approved: Jul 26, 1996 | RLD: No | RS: No | Type: DISCN